FAERS Safety Report 7783289-0 (Version None)
Quarter: 2011Q3

REPORT INFORMATION
  Report Type: 
  Country: None (occurrence: None)
  Receive Date: 20110928
  Receipt Date: 20110921
  Transmission Date: 20111222
  Serious: Yes (Disabling)
  Sender: FDA-Public Use
  Company Number: MX-JNJFOC-20110906052

PATIENT
  Sex: Female
  Weight: 62 kg

DRUGS (1)
  1. LEVAQUIN [Suspect]
     Indication: RENAL DISORDER
     Dosage: PRESCRIBED FOR 6 WEEKS
     Route: 048
     Dates: start: 20110815, end: 20110906

REACTIONS (3)
  - PAIN IN EXTREMITY [None]
  - ABASIA [None]
  - DYSSTASIA [None]
